FAERS Safety Report 15753123 (Version 1)
Quarter: 2018Q4

REPORT INFORMATION
  Report Type: Spontaneous
  Country: US (occurrence: US)
  Receive Date: 20181222
  Receipt Date: 20181222
  Transmission Date: 20190205
  Serious: Yes (Other)
  Sender: FDA-Public Use
  Company Number: US-ROCHE-2233563

PATIENT
  Age: 75 Year
  Sex: Male
  Weight: 105.33 kg

DRUGS (23)
  1. ESBRIET [Suspect]
     Active Substance: PIRFENIDONE
     Indication: IDIOPATHIC PULMONARY FIBROSIS
     Route: 048
  2. OXYGEN. [Concomitant]
     Active Substance: OXYGEN
     Dosage: AT REST 24 HOURS
     Route: 065
  3. DURAGESIC [Concomitant]
     Active Substance: FENTANYL
     Route: 062
  4. POTASSIUM CHLORIDE ERT [Concomitant]
     Route: 048
  5. DILTIAZEM ER [Concomitant]
     Active Substance: DILTIAZEM
     Route: 048
  6. PRAMIPEXOLE. [Concomitant]
     Active Substance: PRAMIPEXOLE
     Route: 048
  7. ALENDRONATE [Concomitant]
     Active Substance: ALENDRONATE SODIUM
     Dosage: ONCE EVERY WEEK ON WEDNESDAY IN MORNING
     Route: 048
  8. LASIX [Concomitant]
     Active Substance: FUROSEMIDE
     Route: 048
  9. OXYCODONE [Concomitant]
     Active Substance: OXYCODONE
     Indication: PAIN
     Route: 065
  10. LORAZEPAM. [Concomitant]
     Active Substance: LORAZEPAM
     Dosage: 0.25 MG EVERY 6 HOURS AS NEEDED
     Route: 065
  11. ATORVASTATIN [Concomitant]
     Active Substance: ATORVASTATIN
     Route: 048
  12. TRINTELLIX [Concomitant]
     Active Substance: VORTIOXETINE HYDROBROMIDE
     Route: 065
  13. WARFARIN [Concomitant]
     Active Substance: WARFARIN
     Dosage: 4 TIMES WEEKLY IN EVENING (BASED UPON INR VALUE)
     Route: 065
  14. BIPAP [Concomitant]
     Active Substance: DEVICE
     Dosage: NIGHTLY
     Route: 065
  15. DYMISTA [Concomitant]
     Active Substance: AZELASTINE HYDROCHLORIDE\FLUTICASONE PROPIONATE
     Dosage: 137 MCG/50 MCG AS DIRECTED
     Route: 045
  16. LASIX [Concomitant]
     Active Substance: FUROSEMIDE
     Route: 065
  17. VITAMIN C [Concomitant]
     Active Substance: ASCORBIC ACID
     Dosage: 2 TABLETS DAILY
     Route: 065
  18. ANORO ELLIPTA [Concomitant]
     Active Substance: UMECLIDINIUM BROMIDE\VILANTEROL TRIFENATATE
     Dosage: 62.5/25 MCG 1 PUFF ON INHALATION SAME TIME DAILY
     Route: 055
  19. CETIRIZINE [Concomitant]
     Active Substance: CETIRIZINE HYDROCHLORIDE
     Route: 048
  20. FISH OIL [Concomitant]
     Active Substance: FISH OIL
     Route: 048
  21. OXYGEN. [Concomitant]
     Active Substance: OXYGEN
     Dosage: 10-15 LITERS WITH ACTIVITY FOR 24 HOURS
     Route: 065
  22. WARFARIN [Concomitant]
     Active Substance: WARFARIN
     Dosage: 3 TIMES WEEKLY IN EVENING (BASED UPON INR VALUE)
     Route: 065
  23. ASPIRIN. [Concomitant]
     Active Substance: ASPIRIN
     Dosage: ONGOING: YES
     Route: 048

REACTIONS (4)
  - Frustration tolerance decreased [Unknown]
  - Pain [Unknown]
  - Lung infection [Unknown]
  - Retching [Not Recovered/Not Resolved]

NARRATIVE: CASE EVENT DATE: 201811
